FAERS Safety Report 24173993 (Version 1)
Quarter: 2024Q3

REPORT INFORMATION
  Report Type: Spontaneous
  Country: DE (occurrence: DE)
  Receive Date: 20240805
  Receipt Date: 20240805
  Transmission Date: 20241016
  Serious: Yes (Other)
  Sender: DR REDDYS
  Company Number: DE-GERMAN-LIT/DEU/24/0011302

PATIENT

DRUGS (4)
  1. FULVESTRANT [Suspect]
     Active Substance: FULVESTRANT
     Indication: Neuroendocrine carcinoma
  2. FULVESTRANT [Suspect]
     Active Substance: FULVESTRANT
     Indication: Breast cancer
  3. PALBOCICLIB [Suspect]
     Active Substance: PALBOCICLIB
     Indication: Neuroendocrine carcinoma
  4. PALBOCICLIB [Suspect]
     Active Substance: PALBOCICLIB
     Indication: Breast cancer

REACTIONS (3)
  - Malignant neoplasm progression [Unknown]
  - Neutropenia [Unknown]
  - Off label use [Unknown]
